FAERS Safety Report 7461887-1 (Version None)
Quarter: 2011Q2

REPORT INFORMATION
  Report Type: 
  Country: None (occurrence: None)
  Receive Date: 20110506
  Receipt Date: 20101209
  Transmission Date: 20111010
  Serious: No
  Sender: FDA-Public Use
  Company Number: US-BAYER-2010-006733

PATIENT
  Age: 63 Year
  Sex: Female

DRUGS (3)
  1. AVELOX [Suspect]
     Indication: PYREXIA
  2. AVELOX [Suspect]
     Indication: PNEUMONIA PRIMARY ATYPICAL
     Dosage: 400 MG, QD
     Route: 048
     Dates: start: 20101201, end: 20101201
  3. AVELOX [Suspect]
     Indication: OROPHARYNGEAL PAIN

REACTIONS (2)
  - OROPHARYNGEAL DISCOMFORT [None]
  - TONGUE DISCOLOURATION [None]
